FAERS Safety Report 5054733-7 (Version None)
Quarter: 2006Q3

REPORT INFORMATION
  Report Type: 
  Country: None (occurrence: None)
  Receive Date: 20060719
  Receipt Date: 20060621
  Transmission Date: 20061208
  Serious: Yes (Death, Hospitalization)
  Sender: FDA-Public Use
  Company Number: PHBS2006CH09326

PATIENT
  Age: 78 Year
  Sex: Male

DRUGS (2)
  1. PREDNISON [Concomitant]
     Dosage: 40 MG/D
  2. CYCLOSPORINE [Suspect]
     Indication: NEPHROTIC SYNDROME

REACTIONS (20)
  - BLOOD CREATININE INCREASED [None]
  - C-REACTIVE PROTEIN INCREASED [None]
  - CELLULITIS [None]
  - CHILLS [None]
  - DRUG INEFFECTIVE [None]
  - EPIDERMOLYSIS BULLOSA [None]
  - ERYTHEMA [None]
  - ESCHERICHIA INFECTION [None]
  - GASTROINTESTINAL HAEMORRHAGE [None]
  - GENERALISED OEDEMA [None]
  - HYPOTHERMIA [None]
  - LEUKOPENIA [None]
  - MELAENA [None]
  - MULTI-ORGAN FAILURE [None]
  - PYREXIA [None]
  - RENAL FAILURE [None]
  - SEPTIC SHOCK [None]
  - SKIN INFECTION [None]
  - SKIN NECROSIS [None]
  - THROMBOCYTOPENIA [None]
